FAERS Safety Report 5292644-2 (Version None)
Quarter: 2007Q2

REPORT INFORMATION
  Report Type: 
  Country: None (occurrence: None)
  Receive Date: 20070404
  Receipt Date: 20070323
  Transmission Date: 20071010
  Serious: Yes (Hospitalization)
  Sender: FDA-Public Use
  Company Number: 2007AL001250

PATIENT
  Age: 79 Year
  Sex: 0

DRUGS (1)
  1. DIGOXIN [Suspect]
     Dosage: 30 MG; X1; PO
     Route: 048

REACTIONS (6)
  - COMA [None]
  - HAEMODYNAMIC INSTABILITY [None]
  - NODAL RHYTHM [None]
  - OVERDOSE [None]
  - RENAL FAILURE ACUTE [None]
  - THERAPEUTIC AGENT TOXICITY [None]
